FAERS Safety Report 4339121-0 (Version None)
Quarter: 2004Q2

REPORT INFORMATION
  Report Type: 
  Country: None (occurrence: None)
  Receive Date: 20040412
  Receipt Date: 20040330
  Transmission Date: 20050107
  Serious: Yes (Other)
  Sender: FDA-Public Use
  Company Number: US-JNJFOC-20040300353

PATIENT
  Age: 44 Year
  Sex: Female
  Weight: 86.1834 kg

DRUGS (1)
  1. REMICADE [Suspect]
     Indication: CROHN'S DISEASE
     Dosage: 5 MG/KG INTRAVENOUS
     Route: 042

REACTIONS (9)
  - ABDOMINAL PAIN [None]
  - COMPUTERISED TOMOGRAM ABNORMAL [None]
  - GASTRITIS [None]
  - HEPATIC LESION [None]
  - METASTASES TO PERITONEUM [None]
  - METASTATIC NEOPLASM [None]
  - OESOPHAGITIS [None]
  - OVARIAN CANCER [None]
  - OVARIAN CYST [None]
